FAERS Safety Report 6864709-2 (Version None)
Quarter: 2010Q3

REPORT INFORMATION
  Report Type: 
  Country: None (occurrence: None)
  Receive Date: 20100721
  Receipt Date: 20080331
  Transmission Date: 20110219
  Serious: No
  Sender: FDA-Public Use
  Company Number: US-PFIZER INC-2008030398

PATIENT
  Sex: Female
  Weight: 62.1 kg

DRUGS (2)
  1. CHANTIX [Suspect]
     Indication: SMOKING CESSATION THERAPY
  2. ADVIL LIQUI-GELS [Concomitant]

REACTIONS (8)
  - ABDOMINAL DISTENSION [None]
  - CONSTIPATION [None]
  - DIZZINESS [None]
  - FEELING DRUNK [None]
  - FLATULENCE [None]
  - HEADACHE [None]
  - SOMNOLENCE [None]
  - WEIGHT INCREASED [None]
